FAERS Safety Report 25290399 (Version 2)
Quarter: 2025Q2

REPORT INFORMATION
  Report Type: Spontaneous
  Country: US (occurrence: US)
  Receive Date: 20250510
  Receipt Date: 20250630
  Transmission Date: 20250717
  Serious: Yes (Death, Life-Threatening, Hospitalization)
  Sender: AMGEN
  Company Number: US-AMGEN-USASP2025089720

PATIENT
  Age: 80 Year
  Sex: Female

DRUGS (1)
  1. IMDELLTRA [Suspect]
     Active Substance: TARLATAMAB-DLLE
     Indication: Small cell lung cancer extensive stage
     Route: 065
     Dates: start: 20250429, end: 20250501

REACTIONS (2)
  - Acute kidney injury [Fatal]
  - Small cell lung cancer extensive stage [Fatal]

NARRATIVE: CASE EVENT DATE: 20250429
